FAERS Safety Report 5353818-5 (Version None)
Quarter: 2007Q2

REPORT INFORMATION
  Report Type: 
  Country: None (occurrence: None)
  Receive Date: 20070608
  Receipt Date: 20070608
  Transmission Date: 20071010
  Serious: Yes (Hospitalization)
  Sender: FDA-Public Use
  Company Number: None

PATIENT
  Sex: Male
  Weight: 103.4 kg

DRUGS (1)
  1. TERAZOSIN HCL [Suspect]
     Indication: BENIGN PROSTATIC HYPERPLASIA
     Dosage: 10 MG DAILY AT BEDTIME PO
     Route: 048
     Dates: start: 20061102, end: 20070228

REACTIONS (2)
  - CARDIAC FAILURE [None]
  - HYPOTHYROIDISM [None]
